FAERS Safety Report 5009295-7 (Version None)
Quarter: 2006Q2

REPORT INFORMATION
  Report Type: 
  Country: None (occurrence: None)
  Receive Date: 20060524
  Receipt Date: 20060130
  Transmission Date: 20061013
  Serious: Yes (Hospitalization, Disabling)
  Sender: FDA-Public Use
  Company Number: PHEH2006US01469

PATIENT
  Age: 51 Year
  Sex: Female
  Weight: 140.59 kg

DRUGS (14)
  1. XANAX [Concomitant]
     Dosage: 1 MG, QHS
     Route: 048
  2. AVANDIA [Concomitant]
     Dosage: 4 MG, QD
     Route: 048
  3. XALATAN [Concomitant]
  4. QVAR 40 [Concomitant]
     Dosage: UNK, BID
  5. SYNTHROID [Concomitant]
     Dosage: 0.1 MG, QD
     Route: 048
  6. ZITHROMAX [Concomitant]
     Route: 048
  7. MEDROL [Concomitant]
     Route: 048
  8. ULTRAM [Concomitant]
     Dosage: 50 MG, Q6H
     Route: 048
  9. LIDODERM [Concomitant]
     Route: 061
  10. NEURONTIN [Concomitant]
     Dosage: 600 MG, BID
     Route: 048
  11. NORVASC [Concomitant]
     Dosage: 10 MG, QD
     Route: 048
  12. HYDROCHLOROTHIAZIDE [Concomitant]
     Dosage: UNK, QD
     Route: 048
  13. DIOVAN [Concomitant]
     Dosage: 160 MG, BID
     Route: 048
  14. LAMISIL [Suspect]
     Indication: NAIL TINEA
     Dosage: 250 MG, QD
     Route: 048
     Dates: start: 20040115, end: 20040121

REACTIONS (49)
  - ABDOMINAL PAIN [None]
  - ALANINE AMINOTRANSFERASE INCREASED [None]
  - ANAEMIA [None]
  - ANXIETY [None]
  - ASTHENIA [None]
  - AZOTAEMIA [None]
  - BACK PAIN [None]
  - BLOOD BILIRUBIN INCREASED [None]
  - BLOOD CREATININE INCREASED [None]
  - BLOOD LACTATE DEHYDROGENASE INCREASED [None]
  - BLOOD UREA INCREASED [None]
  - BRAIN NATRIURETIC PEPTIDE INCREASED [None]
  - CATHETER PLACEMENT [None]
  - CHEST PAIN [None]
  - CONFUSIONAL STATE [None]
  - COUGH [None]
  - DEHYDRATION [None]
  - DIALYSIS [None]
  - DIPLOPIA [None]
  - DISORIENTATION [None]
  - DISTURBANCE IN ATTENTION [None]
  - DYSPNOEA [None]
  - DYSPNOEA EXERTIONAL [None]
  - ECCHYMOSIS [None]
  - EMOTIONAL DISTRESS [None]
  - FATIGUE [None]
  - FLUID OVERLOAD [None]
  - HAEMATOCRIT DECREASED [None]
  - HAEMOGLOBIN DECREASED [None]
  - HAEMOLYSIS [None]
  - HEADACHE [None]
  - MENTAL STATUS CHANGES [None]
  - NAUSEA [None]
  - OEDEMA PERIPHERAL [None]
  - PAIN [None]
  - PANCYTOPENIA [None]
  - PARAESTHESIA [None]
  - PLASMAPHERESIS [None]
  - PULMONARY CONGESTION [None]
  - PYREXIA [None]
  - RED BLOOD CELL SCHISTOCYTES PRESENT [None]
  - RENAL FAILURE ACUTE [None]
  - SPEECH DISORDER [None]
  - THROMBOCYTOPENIA [None]
  - THROMBOTIC THROMBOCYTOPENIC PURPURA [None]
  - TRANSIENT ISCHAEMIC ATTACK [None]
  - VISUAL FIELD DEFECT [None]
  - VOMITING [None]
  - WHITE BLOOD CELL COUNT DECREASED [None]
